FAERS Safety Report 8008281-2 (Version None)
Quarter: 2011Q4

REPORT INFORMATION
  Report Type: 
  Country: None (occurrence: None)
  Receive Date: 20111227
  Receipt Date: 20111215
  Transmission Date: 20120403
  Serious: Yes (Other)
  Sender: FDA-Public Use
  Company Number: CN-ASTRAZENECA-2011SE75771

PATIENT
  Sex: Female

DRUGS (3)
  1. ATROPINE [Suspect]
     Route: 042
  2. FENTANYL [Suspect]
     Indication: ANAESTHESIA
     Route: 042
  3. PROPOFOL [Suspect]
     Indication: ANAESTHESIA
     Route: 042

REACTIONS (10)
  - NAUSEA [None]
  - FATIGUE [None]
  - PROCEDURAL PAIN [None]
  - OXYGEN SATURATION DECREASED [None]
  - RESPIRATORY ARREST [None]
  - HAEMORRHAGE [None]
  - DYSKINESIA [None]
  - BLOOD PRESSURE DECREASED [None]
  - HEART RATE DECREASED [None]
  - DIZZINESS [None]
